FAERS Safety Report 17205645 (Version 1)
Quarter: 2019Q4

REPORT INFORMATION
  Report Type: Spontaneous
  Country: US (occurrence: US)
  Receive Date: 20191204
  Receipt Date: 20191204
  Transmission Date: 20200122
  Serious: Yes (Death)
  Sender: FDA-Public Use
  Company Number: None

PATIENT
  Sex: Female

DRUGS (1)
  1. TACROLIMUS 0.5MG CAP (MYLAN) [Suspect]
     Active Substance: TACROLIMUS
     Indication: STEM CELL TRANSPLANT

REACTIONS (1)
  - Death [None]
